FAERS Safety Report 17164286 (Version 2)
Quarter: 2020Q1

REPORT INFORMATION
  Report Type: Spontaneous
  Country: US (occurrence: US)
  Receive Date: 20191217
  Receipt Date: 20200128
  Transmission Date: 20200409
  Serious: No
  Sender: FDA-Public Use
  Company Number: US-PFIZER INC-2019541124

PATIENT
  Age: 72 Year
  Sex: Female
  Weight: 68.27 kg

DRUGS (3)
  1. METHOTREXATE. [Concomitant]
     Active Substance: METHOTREXATE
     Dosage: UNK
     Dates: start: 1990
  2. XELJANZ [Suspect]
     Active Substance: TOFACITINIB CITRATE
     Indication: RHEUMATOID ARTHRITIS
     Dosage: 10 MG, DAILY
  3. XELJANZ [Suspect]
     Active Substance: TOFACITINIB CITRATE
     Dosage: 10 MG, TWICE A DAY
     Dates: start: 2010

REACTIONS (3)
  - Off label use [Unknown]
  - Product use issue [Unknown]
  - Bladder disorder [Not Recovered/Not Resolved]

NARRATIVE: CASE EVENT DATE: 2010
